FAERS Safety Report 9111188 (Version 1)
Quarter: 2013Q1

REPORT INFORMATION
  Report Type: Spontaneous
  Country: US (occurrence: US)
  Receive Date: 20130219
  Receipt Date: 20130219
  Transmission Date: 20140127
  Serious: No
  Sender: FDA-Public Use
  Company Number: US-BRISTOL-MYERS SQUIBB COMPANY-16735227

PATIENT
  Age: 49 Year
  Sex: Female

DRUGS (10)
  1. ABATACEPT SUBQ INJECTION 125MG/ML [Suspect]
     Indication: RHEUMATOID ARTHRITIS
     Dosage: STARTED WITH IV DOSE 750 MG
     Route: 058
  2. ATENOLOL [Concomitant]
  3. GLIMEPIRIDE [Concomitant]
  4. IBUPROFEN [Concomitant]
  5. JANUVIA [Concomitant]
  6. LISINOPRIL [Concomitant]
  7. PREDNISONE [Concomitant]
     Dosage: 2 TABS DAILY
  8. PRILOSEC [Concomitant]
  9. VITAMIN D [Concomitant]
     Dosage: 1DF= 50,000-UNITS NOS
  10. VYTORIN [Concomitant]
     Dosage: 1DF= 10MG/20MG

REACTIONS (1)
  - Drug dose omission [Unknown]
